FAERS Safety Report 9754272 (Version 1)
Quarter: 2013Q4

REPORT INFORMATION
  Report Type: Spontaneous
  Country: US (occurrence: US)
  Receive Date: 20131213
  Receipt Date: 20131213
  Transmission Date: 20140711
  Serious: No
  Sender: FDA-Public Use
  Company Number: US-TEVA-408955USA

PATIENT
  Age: 26 Year
  Sex: Female
  Weight: 97.61 kg

DRUGS (5)
  1. PARAGARD 380A [Suspect]
     Indication: CONTRACEPTION
     Route: 015
     Dates: start: 20120516
  2. ASPIRIN [Concomitant]
     Indication: CEREBROVASCULAR ACCIDENT
  3. CLARITIN [Concomitant]
     Indication: HYPERSENSITIVITY
  4. ACID REDUCER [Concomitant]
     Indication: DYSPEPSIA
  5. AMITRIPTYLINE [Concomitant]
     Indication: MIGRAINE

REACTIONS (2)
  - Metrorrhagia [Not Recovered/Not Resolved]
  - Uterine spasm [Not Recovered/Not Resolved]
